FAERS Safety Report 19444495 (Version 1)
Quarter: 2021Q2

REPORT INFORMATION
  Report Type: Spontaneous
  Country: US (occurrence: US)
  Receive Date: 20210621
  Receipt Date: 20210621
  Transmission Date: 20210717
  Serious: Yes (Life-Threatening, Hospitalization, Other)
  Sender: FDA-Public Use
  Company Number: US-GILEAD-2021-0536927

PATIENT
  Age: 71 Year
  Sex: Male
  Weight: 85 kg

DRUGS (3)
  1. FLUDARA [Concomitant]
     Active Substance: FLUDARABINE PHOSPHATE
     Dosage: UNK
     Dates: start: 20210519, end: 20210521
  2. CYTOXAN [Concomitant]
     Active Substance: CYCLOPHOSPHAMIDE
     Dosage: UNK
     Dates: start: 20210519, end: 20210521
  3. YESCARTA [Suspect]
     Active Substance: AXICABTAGENE CILOLEUCEL
     Indication: B-CELL LYMPHOMA RECURRENT
     Dosage: 68 ML, SINGLE
     Route: 042
     Dates: start: 20210524, end: 20210524

REACTIONS (2)
  - Neurotoxicity [Recovering/Resolving]
  - Cytokine release syndrome [Recovered/Resolved]

NARRATIVE: CASE EVENT DATE: 20210525
